FAERS Safety Report 17313843 (Version 1)
Quarter: 2020Q1

REPORT INFORMATION
  Report Type: Spontaneous
  Country: DE (occurrence: DE)
  Receive Date: 20200124
  Receipt Date: 20200124
  Transmission Date: 20200409
  Serious: Yes (Other)
  Sender: FDA-Public Use
  Company Number: DE-ASTRAZENECA-2020SE09718

PATIENT
  Age: 31 Year
  Sex: Female

DRUGS (2)
  1. BENRALIZUMAB. [Suspect]
     Active Substance: BENRALIZUMAB
     Indication: ASTHMA
     Route: 058
  2. LONG-TERM ORAL CORTICOSTEROIDS [Concomitant]
     Route: 048

REACTIONS (1)
  - Pulmonary function test abnormal [Unknown]
